FAERS Safety Report 18692053 (Version 2)
Quarter: 2021Q1

REPORT INFORMATION
  Report Type: Spontaneous
  Country: FR (occurrence: FR)
  Receive Date: 20210102
  Receipt Date: 20210122
  Transmission Date: 20210419
  Serious: Yes (Hospitalization)
  Sender: FDA-Public Use
  Company Number: FR-ACCORD-213081

PATIENT
  Age: 81 Year
  Sex: Male
  Weight: 91.4 kg

DRUGS (8)
  1. UVEDOSE [Concomitant]
     Active Substance: CHOLECALCIFEROL
  2. RESITUNE [Concomitant]
     Active Substance: ASPIRIN
     Dosage: STRENGTH: 75 MG
  3. TERALITHE [Suspect]
     Active Substance: LITHIUM CARBONATE
     Indication: BIPOLAR DISORDER
     Dosage: STRENGTH 400 MG
     Route: 048
     Dates: start: 1992, end: 20201219
  4. COMBODART [Concomitant]
     Active Substance: DUTASTERIDE\TAMSULOSIN
     Dosage: STRENGTH: 0.5 MG / 0.4 MG
  5. MOPRAL [Concomitant]
     Active Substance: OMEPRAZOLE
     Dosage: STRENGTH: 10 MG
  6. PRAVASTATIN. [Suspect]
     Active Substance: PRAVASTATIN
     Indication: PRODUCT USED FOR UNKNOWN INDICATION
  7. MICARDISPLUS [Concomitant]
     Active Substance: HYDROCHLOROTHIAZIDE\TELMISARTAN
  8. BISOPROLOL [Concomitant]
     Active Substance: BISOPROLOL

REACTIONS (7)
  - Gait disturbance [Recovered/Resolved]
  - Extrapyramidal disorder [Recovered/Resolved]
  - Antipsychotic drug level increased [Recovering/Resolving]
  - General physical health deterioration [Recovered/Resolved]
  - Bradycardia [Recovered/Resolved]
  - Speech disorder [Recovered/Resolved]
  - Decreased appetite [Recovered/Resolved]

NARRATIVE: CASE EVENT DATE: 20201219
